FAERS Safety Report 13596594 (Version 1)
Quarter: 2017Q2

REPORT INFORMATION
  Report Type: Spontaneous
  Country: US (occurrence: US)
  Receive Date: 20170524
  Receipt Date: 20170524
  Transmission Date: 20170830
  Serious: Yes (Life-Threatening, Hospitalization, Disabling)
  Sender: FDA-Public Use
  Company Number: None

PATIENT
  Age: 17 Year
  Sex: Female
  Weight: 105.32 kg

DRUGS (19)
  1. LEVETHROXINE [Concomitant]
  2. ABILIFY [Concomitant]
     Active Substance: ARIPIPRAZOLE
  3. BENZTROPINE [Concomitant]
     Active Substance: BENZTROPINE
  4. WARFARIN [Concomitant]
     Active Substance: WARFARIN
  5. FLECAIDNIDE [Concomitant]
  6. LORATADINE. [Concomitant]
     Active Substance: LORATADINE
  7. MECHANICAL VALVE [Concomitant]
  8. MELLARIL [Suspect]
     Active Substance: THIORIDAZINE HYDROCHLORIDE
     Dosage: 4 PILLS 4 X DAILY MOUTH
     Route: 048
     Dates: start: 1983, end: 1998
  9. CLONAPAM [Concomitant]
     Active Substance: CLONAZEPAM
  10. SIMVASTATIN. [Concomitant]
     Active Substance: SIMVASTATIN
  11. CALTRATE WITH VITAMIN D [Concomitant]
     Active Substance: CALCIUM CARBONATE\CHOLECALCIFEROL
  12. FUROSAMIDE [Concomitant]
     Active Substance: FUROSEMIDE
  13. NASAL SPRAY [Concomitant]
     Active Substance: UNSPECIFIED INGREDIENT
  14. OMEPRAZOLE. [Concomitant]
     Active Substance: OMEPRAZOLE
  15. MILK OF MAGNESIA [Concomitant]
     Active Substance: MAGNESIUM HYDROXIDE
  16. PROLIXIN [Suspect]
     Active Substance: FLUPHENAZINE HYDROCHLORIDE
  17. TYLONOL [Concomitant]
  18. FIBER CHOICE [Concomitant]
  19. ROBITUSIN [Concomitant]

REACTIONS (5)
  - Feeling abnormal [None]
  - Anxiety [None]
  - Heart rate increased [None]
  - Heart rate abnormal [None]
  - Tongue disorder [None]

NARRATIVE: CASE EVENT DATE: 1983
